FAERS Safety Report 5227762-8 (Version None)
Quarter: 2007Q1

REPORT INFORMATION
  Report Type: 
  Country: None (occurrence: None)
  Receive Date: 20070202
  Receipt Date: 20070131
  Transmission Date: 20070707
  Serious: Yes (Hospitalization)
  Sender: FDA-Public Use
  Company Number: FR-MERCK-0611FRA00049

PATIENT
  Age: 56 Year
  Sex: Female
  Weight: 38 kg

DRUGS (9)
  1. CANCIDAS [Suspect]
     Indication: SYSTEMIC CANDIDA
     Route: 042
     Dates: start: 20061013, end: 20061013
  2. CANCIDAS [Suspect]
     Route: 042
     Dates: start: 20061014, end: 20061016
  3. MORPHINE [Concomitant]
     Indication: PAIN
     Route: 048
  4. METOCLOPRAMIDE [Concomitant]
     Indication: NAUSEA
     Route: 048
     Dates: end: 20061014
  5. CHLORPROMAZINE [Suspect]
     Route: 048
     Dates: start: 20061014, end: 20061016
  6. CITALOPRAM [Concomitant]
     Indication: DEPRESSION
     Route: 048
  7. RACECADOTRIL [Concomitant]
     Indication: DIARRHOEA
     Route: 048
  8. CEFTAZIDIME [Concomitant]
     Route: 065
  9. CIPROFLOXACIN [Concomitant]
     Route: 065

REACTIONS (1)
  - HEPATITIS [None]
